FAERS Safety Report 7756857-X (Version None)
Quarter: 2011Q3

REPORT INFORMATION
  Report Type: 
  Country: None (occurrence: None)
  Receive Date: 20110916
  Receipt Date: 20110914
  Transmission Date: 20111222
  Serious: No
  Sender: FDA-Public Use
  Company Number: US-BAYER-2011-085935

PATIENT
  Age: 47 Year
  Sex: Female

DRUGS (1)
  1. BETASERON [Suspect]
     Indication: NEUROMYELITIS OPTICA
     Dosage: 0.25 MG, UNK
     Route: 058
     Dates: start: 20090101

REACTIONS (1)
  - URTICARIA [None]
